FAERS Safety Report 18449279 (Version 9)
Quarter: 2021Q2

REPORT INFORMATION
  Report Type: Report from Study
  Country: MX (occurrence: MX)
  Receive Date: 20201102
  Receipt Date: 20210511
  Transmission Date: 20210717
  Serious: Yes (Other)
  Sender: FDA-Public Use
  Company Number: MX-SA-2020SA302521

PATIENT
  Age: 49 Year
  Sex: Female

DRUGS (2)
  1. ALEMTUZUMAB [Suspect]
     Active Substance: ALEMTUZUMAB
     Indication: MULTIPLE SCLEROSIS
     Dosage: 12 MG, QD
     Route: 041
     Dates: start: 20201012, end: 20201016
  2. NUVIGIL [Suspect]
     Active Substance: ARMODAFINIL
     Dosage: UNK
     Route: 065

REACTIONS (14)
  - SARS-CoV-2 test negative [Not Recovered/Not Resolved]
  - Insomnia [Unknown]
  - Bacterial infection [Not Recovered/Not Resolved]
  - Rhinorrhoea [Not Recovered/Not Resolved]
  - Fatigue [Not Recovered/Not Resolved]
  - Influenza [Not Recovered/Not Resolved]
  - Headache [Not Recovered/Not Resolved]
  - Mononucleosis heterophile test negative [Not Recovered/Not Resolved]
  - Oropharyngeal pain [Recovering/Resolving]
  - Pharyngeal ulceration [Not Recovered/Not Resolved]
  - Pyrexia [Not Recovered/Not Resolved]
  - Immunosuppression [Recovering/Resolving]
  - White blood cell count decreased [Not Recovered/Not Resolved]
  - Drug hypersensitivity [Unknown]

NARRATIVE: CASE EVENT DATE: 20201023
